FAERS Safety Report 23816665 (Version 3)
Quarter: 2025Q4

REPORT INFORMATION
  Report Type: Report from Study
  Country: JP (occurrence: JP)
  Receive Date: 20240504
  Receipt Date: 20251225
  Transmission Date: 20260118
  Serious: Yes (Death, Other)
  Sender: GENMAB
  Company Number: JP-GENMAB-2024-01470

PATIENT
  Age: 72 Year
  Sex: Male
  Weight: 55.4 kg

DRUGS (9)
  1. EPKINLY [Suspect]
     Active Substance: EPCORITAMAB-BYSP
     Indication: Diffuse large B-cell lymphoma refractory
     Dosage: 0.16 MILLIGRAM, SINGLE
     Route: 058
     Dates: start: 20231221, end: 20231221
  2. EPKINLY [Suspect]
     Active Substance: EPCORITAMAB-BYSP
     Dosage: 0.8 MILLIGRAM, SINGLE
     Route: 058
     Dates: start: 20231228, end: 20231228
  3. EPKINLY [Suspect]
     Active Substance: EPCORITAMAB-BYSP
     Dosage: 48 MILLIGRAM, ADMINISTERED UNTIL CYCLE 3.5
     Route: 058
     Dates: start: 20240104, end: 20240221
  4. CORTICOTROPIN [Concomitant]
     Active Substance: CORTICOTROPIN
     Indication: Prophylaxis
     Dosage: 50 MILLIGRAM, REDUCED BY 50MG, AFTER LYMPHOCYTE COUNT DECREASED
     Dates: start: 20231221, end: 202312
  5. CORTICOTROPIN [Concomitant]
     Active Substance: CORTICOTROPIN
     Dosage: 100 MILLIGRAM, AFTER PYREXIA, INCREASED BY 50 MG
     Dates: start: 202312
  6. DEXAMETHASONE [Concomitant]
     Active Substance: DEXAMETHASONE
     Indication: Diffuse large B-cell lymphoma
     Dosage: UNK, DEVIC THRAPHY
     Dates: start: 20231215, end: 202312
  7. IFOSFAMIDE [Concomitant]
     Active Substance: IFOSFAMIDE
     Indication: Diffuse large B-cell lymphoma
     Dosage: UNK, DEVIC THRAPHY
     Dates: start: 20231215, end: 202312
  8. ETOPOSIDE [Concomitant]
     Active Substance: ETOPOSIDE
     Indication: Diffuse large B-cell lymphoma
     Dosage: UNK, DEVIC THRAPHY
     Dates: start: 20231215, end: 202312
  9. CARBOPLATIN [Concomitant]
     Active Substance: CARBOPLATIN
     Indication: Diffuse large B-cell lymphoma
     Dosage: UNK, DEVIC THRAPHY
     Dates: start: 20231215, end: 202312

REACTIONS (2)
  - Diffuse large B-cell lymphoma refractory [Fatal]
  - COVID-19 [Recovered/Resolved]

NARRATIVE: CASE EVENT DATE: 20231222
